FAERS Safety Report 14347016 (Version 1)
Quarter: 2018Q1

REPORT INFORMATION
  Report Type: Spontaneous
  Country: CA (occurrence: CA)
  Receive Date: 20180101
  Receipt Date: 20180101
  Transmission Date: 20180509
  Serious: Yes (Disabling, Other)
  Sender: FDA-Public Use
  Company Number: None

PATIENT
  Age: 53 Year
  Sex: Female
  Weight: 85.5 kg

DRUGS (7)
  1. VICTORIA [Concomitant]
  2. GLICLAZIDE [Concomitant]
     Active Substance: GLICLAZIDE
  3. VITAMIN C [Concomitant]
     Active Substance: ASCORBIC ACID
  4. INVOKANA [Suspect]
     Active Substance: CANAGLIFLOZIN
     Indication: DIABETES MELLITUS
     Dates: start: 20151015, end: 20161220
  5. TRIDURAL [Concomitant]
     Active Substance: TRAMADOL HYDROCHLORIDE
  6. GARLIC. [Concomitant]
     Active Substance: GARLIC
  7. OMEGA 3 [Concomitant]
     Active Substance: OMEGA-3 FATTY ACIDS

REACTIONS (13)
  - Swelling [None]
  - Fungal infection [None]
  - Vulvovaginal mycotic infection [None]
  - Pustular psoriasis [None]
  - Skin exfoliation [None]
  - Onychomadesis [None]
  - Dysuria [None]
  - Mastitis [None]
  - Gait inability [None]
  - Localised infection [None]
  - Fungal skin infection [None]
  - Bacterial infection [None]
  - Pain [None]

NARRATIVE: CASE EVENT DATE: 20160715
